FAERS Safety Report 24630585 (Version 6)
Quarter: 2025Q4

REPORT INFORMATION
  Report Type: Spontaneous
  Country: TR (occurrence: TR)
  Receive Date: 20241118
  Receipt Date: 20251212
  Transmission Date: 20260117
  Serious: Yes (Hospitalization, Other)
  Sender: PFIZER
  Company Number: TR-PFIZER INC-PV202400148669

PATIENT
  Age: 11 Year
  Sex: Female
  Weight: 21.5 kg

DRUGS (3)
  1. NGENLA [Suspect]
     Active Substance: SOMATROGON-GHLA
     Indication: Growth hormone deficiency
     Dosage: 12 MG, WEEKLY
     Route: 058
     Dates: start: 20241022, end: 20241114
  2. NGENLA [Suspect]
     Active Substance: SOMATROGON-GHLA
     Dosage: REDUCED DOSE
  3. EUTHYROX [Concomitant]
     Active Substance: LEVOTHYROXINE SODIUM
     Indication: Central hypothyroidism
     Dosage: 1 DF, 1X/DAY
     Dates: start: 20241015

REACTIONS (7)
  - Papilloedema [Recovering/Resolving]
  - Nausea [Recovered/Resolved]
  - Headache [Recovered/Resolved]
  - Asthenia [Recovering/Resolving]
  - Malnutrition [Recovering/Resolving]
  - Idiopathic intracranial hypertension [Unknown]
  - Intracranial pressure increased [Unknown]

NARRATIVE: CASE EVENT DATE: 20241101
